FAERS Safety Report 16833350 (Version 1)
Quarter: 2019Q4

REPORT INFORMATION
  Report Type: Spontaneous
  Country: US (occurrence: US)
  Receive Date: 20190920
  Receipt Date: 20190920
  Transmission Date: 20200122
  Serious: No
  Sender: FDA-Public Use
  Company Number: None

PATIENT

DRUGS (1)
  1. METHADONE HYDROCHLORIDE TABLETS 10MG [Suspect]
     Active Substance: METHADONE HYDROCHLORIDE
     Indication: DRUG DEPENDENCE
     Route: 048

REACTIONS (4)
  - Product physical consistency issue [None]
  - Product physical issue [None]
  - Product formulation issue [None]
  - Product appearance confusion [None]
